FAERS Safety Report 18109473 (Version 2)
Quarter: 2020Q3

REPORT INFORMATION
  Report Type: Spontaneous
  Country: PL (occurrence: PL)
  Receive Date: 20200804
  Receipt Date: 20200901
  Transmission Date: 20201103
  Serious: Yes (Hospitalization, Other)
  Sender: FDA-Public Use
  Company Number: PL-MSNLABS-2020MSNLIT00169

PATIENT
  Age: 42 Year
  Sex: Female

DRUGS (15)
  1. DULOXETINE. [Suspect]
     Active Substance: DULOXETINE
     Indication: HYPERTENSION
     Dosage: 90 MILLIGRAM, DAILY
     Route: 065
  2. METOCLOPRAMIDE. [Concomitant]
     Active Substance: METOCLOPRAMIDE
     Dosage: 300 MILLIGRAM, DAILY
     Route: 065
  3. DEXAMETHASONE. [Concomitant]
     Active Substance: DEXAMETHASONE
     Route: 065
  4. OLANZAPINE. [Suspect]
     Active Substance: OLANZAPINE
     Indication: ANTIEMETIC SUPPORTIVE CARE
     Dosage: 5 MILLIGRAM
     Route: 065
  5. DIMENHYDRINATE. [Concomitant]
     Active Substance: DIMENHYDRINATE
     Route: 065
  6. MORPHINE [Suspect]
     Active Substance: MORPHINE
     Indication: HYPERTENSION
     Dosage: 80 MILLIGRAM, BID
     Route: 065
  7. METOCLOPRAMIDE. [Concomitant]
     Active Substance: METOCLOPRAMIDE
  8. MIDAZOLAM. [Concomitant]
     Active Substance: MIDAZOLAM
     Indication: PRODUCT USED FOR UNKNOWN INDICATION
     Dosage: 5 MILLIGRAM
     Route: 042
  9. CIPROFLOXACIN. [Suspect]
     Active Substance: CIPROFLOXACIN
     Indication: PRODUCT USED FOR UNKNOWN INDICATION
     Dosage: 500 MILLIGRAM, BID
     Route: 048
  10. DIMENHYDRINATE. [Concomitant]
     Active Substance: DIMENHYDRINATE
  11. QUETIAPINE. [Suspect]
     Active Substance: QUETIAPINE
     Indication: HYPERTENSION
     Route: 065
  12. PERINDOPRIL + AMLODIPINE [Suspect]
     Active Substance: AMLODIPINE\PERINDOPRIL
     Indication: HYPERTENSION
     Route: 065
  13. DEXAMETHASONE. [Concomitant]
     Active Substance: DEXAMETHASONE
  14. PREGABALIN CAPSULES 300 MG [Suspect]
     Active Substance: PREGABALIN
     Indication: HYPERTENSION
     Dosage: 25 MILLIGRAM, DAILY, AT NIGHT
     Route: 065
  15. OLANZAPINE. [Suspect]
     Active Substance: OLANZAPINE
     Route: 065

REACTIONS (11)
  - Paraesthesia [Unknown]
  - Anxiety [Unknown]
  - Tinnitus [Unknown]
  - Thirst [Unknown]
  - Vomiting [Unknown]
  - Dysuria [Unknown]
  - Urinary retention [Unknown]
  - Polydipsia [Unknown]
  - Nausea [Unknown]
  - Drug interaction [Unknown]
  - Off label use [Unknown]
